FAERS Safety Report 14999128 (Version 4)
Quarter: 2018Q3

REPORT INFORMATION
  Report Type: Report from Study
  Country: US (occurrence: US)
  Receive Date: 20180612
  Receipt Date: 20180724
  Transmission Date: 20181010
  Serious: Yes (Hospitalization, Other)
  Sender: FDA-Public Use
  Company Number: US-UGNX-US-UGNX-18-00090

PATIENT
  Age: 16 Year
  Sex: Male

DRUGS (5)
  1. VESTRONIDASE ALFA?VJBK [Suspect]
     Active Substance: VESTRONIDASE ALFA-VJBK
     Dosage: 20CC/HR
     Dates: start: 20180622
  2. VESTRONIDASE ALFA?VJBK [Suspect]
     Active Substance: VESTRONIDASE ALFA-VJBK
     Dosage: MAX OF 30 CC/HR
  3. VESTRONIDASE ALFA?VJBK [Suspect]
     Active Substance: VESTRONIDASE ALFA-VJBK
     Indication: MUCOPOLYSACCHARIDOSIS VII
     Dosage: ONE HOUR 3 CC/H; HALF AN HOUR 6 CC/H;  ONE HOUR 38 CC/H
     Dates: end: 20180606
  4. VESTRONIDASE ALFA?VJBK [Suspect]
     Active Substance: VESTRONIDASE ALFA-VJBK
     Dosage: 15 CC/H; INCREASED TO 30 CC/H
     Dates: start: 20180606
  5. NORVASC [Concomitant]
     Active Substance: AMLODIPINE BESYLATE

REACTIONS (14)
  - Hypotension [Recovered/Resolved]
  - Infusion related reaction [Recovered/Resolved]
  - Blood pressure decreased [Recovered/Resolved]
  - Fine motor skill dysfunction [Unknown]
  - Hypertension [Unknown]
  - Corneal disorder [Recovered/Resolved]
  - Fatigue [Unknown]
  - Pallor [Unknown]
  - Pain [Unknown]
  - Clonus [Unknown]
  - Rhinovirus infection [Unknown]
  - Weight increased [Unknown]
  - Vomiting [Recovered/Resolved]
  - Corneal transplant [Recovered/Resolved]

NARRATIVE: CASE EVENT DATE: 2018
